FAERS Safety Report 9387931 (Version 2)
Quarter: 2013Q3

REPORT INFORMATION
  Report Type: Spontaneous
  Country: FR (occurrence: FR)
  Receive Date: 20130708
  Receipt Date: 20130913
  Transmission Date: 20140515
  Serious: Yes (Death, Other)
  Sender: FDA-Public Use
  Company Number: FR-TEVA-417295ISR

PATIENT
  Age: 85 Year
  Sex: Female

DRUGS (1)
  1. FUROSEMIDE TEVA 40 MG [Suspect]

REACTIONS (5)
  - Death [Fatal]
  - Respiratory failure [Unknown]
  - Swelling face [Unknown]
  - Local swelling [Unknown]
  - Fluid retention [Unknown]
